FAERS Safety Report 17586508 (Version 1)
Quarter: 2020Q1

REPORT INFORMATION
  Report Type: Spontaneous
  Country: US (occurrence: US)
  Receive Date: 20200326
  Receipt Date: 20200326
  Transmission Date: 20200409
  Serious: No
  Sender: FDA-Public Use
  Company Number: None

PATIENT
  Age: 73 Year
  Sex: Female
  Weight: 81.45 kg

DRUGS (10)
  1. PROCHLORPERAZINE 10 MG , ORAL [Concomitant]
  2. CAPECITABINE. [Suspect]
     Active Substance: CAPECITABINE
     Indication: BILE DUCT CANCER
     Route: 048
     Dates: start: 20200316, end: 20200326
  3. DURAGESIC 50MCG/HR, TRANSDERMAL [Concomitant]
  4. LORATADINE, 10 MG, ORAL [Concomitant]
  5. ONDANSETRON 8 MG, ORAL [Concomitant]
  6. DEXAMETHASONE 4 MG, ORAL [Concomitant]
  7. OXYCODONE 10 MG, ORAL [Concomitant]
  8. SENNA 8.6 MG, ORAL [Concomitant]
  9. CAPECITABINE. [Suspect]
     Active Substance: CAPECITABINE
     Indication: BILE DUCT CANCER
     Route: 048
     Dates: start: 20200316, end: 20200326
  10. CENTRUM SILVER 50 + WOMEN, ORAL [Concomitant]

REACTIONS (1)
  - Hospice care [None]

NARRATIVE: CASE EVENT DATE: 20200326
